FAERS Safety Report 10575864 (Version 2)
Quarter: 2015Q4

REPORT INFORMATION
  Report Type: Spontaneous
  Country: US (occurrence: US)
  Receive Date: 20141111
  Receipt Date: 20151014
  Transmission Date: 20160304
  Serious: Yes (Hospitalization)
  Sender: FDA-Public Use
  Company Number: US-CREALTA PHARMACEUTICALS-2014S1000016

PATIENT
  Age: 59 Year
  Sex: Male

DRUGS (1)
  1. KRYSTEXXA [Suspect]
     Active Substance: PEGLOTICASE
     Indication: GOUT
     Route: 042
     Dates: start: 20140226, end: 20140226

REACTIONS (10)
  - Renal failure [Unknown]
  - Delirium [Unknown]
  - Pulmonary oedema [Unknown]
  - Acute myocardial infarction [Unknown]
  - Methaemoglobinaemia [Recovered/Resolved]
  - Drug administration error [Recovered/Resolved]
  - Respiratory failure [Unknown]
  - Pneumonia [Unknown]
  - Cardiac failure congestive [Unknown]
  - Contraindication to medical treatment [Recovered/Resolved]
